FAERS Safety Report 12697667 (Version 1)
Quarter: 2016Q3

REPORT INFORMATION
  Report Type: Spontaneous
  Country: US (occurrence: None)
  Receive Date: 20160829
  Receipt Date: 20160829
  Transmission Date: 20161109
  Serious: No
  Sender: FDA-Public Use
  Company Number: None

PATIENT

DRUGS (1)
  1. SCOPOLAMINE PATCH, 1.5MG BAXTER [Suspect]
     Active Substance: SCOPOLAMINE
     Indication: SECRETION DISCHARGE
     Route: 063

REACTIONS (3)
  - Product adhesion issue [None]
  - Product quality issue [None]
  - Application site rash [None]

NARRATIVE: CASE EVENT DATE: 20160825
